FAERS Safety Report 23580743 (Version 6)
Quarter: 2024Q2

REPORT INFORMATION
  Report Type: Spontaneous
  Country: US (occurrence: US)
  Receive Date: 20240229
  Receipt Date: 20240619
  Transmission Date: 20240715
  Serious: Yes (Hospitalization)
  Sender: FDA-Public Use
  Company Number: US-Calliditas-2024CAL00269

PATIENT
  Age: 51 Year
  Sex: Male
  Weight: 106 kg

DRUGS (14)
  1. TARPEYO [Suspect]
     Active Substance: BUDESONIDE
     Indication: Selective IgA immunodeficiency
     Dosage: 16 MG (4 MG CAPSULES) ONCE DAILY
     Route: 048
     Dates: start: 20231031
  2. NORVASC [Concomitant]
     Active Substance: AMLODIPINE BESYLATE
     Route: 048
     Dates: end: 20240216
  3. ABILIFY [Concomitant]
     Active Substance: ARIPIPRAZOLE
  4. ASPIRIN [Concomitant]
     Active Substance: ASPIRIN
     Route: 048
  5. WELLBUTRIN [Concomitant]
     Active Substance: BUPROPION HYDROCHLORIDE
     Route: 048
  6. GLEEVEC [Concomitant]
     Active Substance: IMATINIB MESYLATE
     Route: 048
  7. COZAAR [Concomitant]
     Active Substance: LOSARTAN POTASSIUM
     Route: 048
     Dates: start: 20230602, end: 20231114
  8. TOPROL XL [Concomitant]
     Active Substance: METOPROLOL SUCCINATE
  9. METOPROLOL TARTRATE [Concomitant]
     Active Substance: METOPROLOL TARTRATE
     Route: 048
  10. PROTONIX [Concomitant]
     Active Substance: PANTOPRAZOLE SODIUM
     Dosage: IF NEEDED
     Route: 048
     Dates: start: 20220804
  11. COMPAZINE [Concomitant]
     Active Substance: PROCHLORPERAZINE MALEATE
     Dosage: IF NEEDED
     Route: 048
     Dates: start: 20220814
  12. VIAGRA [Concomitant]
     Active Substance: SILDENAFIL CITRATE
     Dosage: IF NEEDED
     Route: 048
     Dates: start: 20220814
  13. CHOLECALCIFEROL [Concomitant]
     Active Substance: CHOLECALCIFEROL
     Route: 048
     Dates: start: 20231011
  14. FARXIGA [Concomitant]
     Active Substance: DAPAGLIFLOZIN PROPANEDIOL
     Route: 048
     Dates: start: 20231011, end: 20240404

REACTIONS (26)
  - Hypertension [Not Recovered/Not Resolved]
  - Alopecia [Not Recovered/Not Resolved]
  - Viral infection [Recovered/Resolved]
  - Taste disorder [Recovering/Resolving]
  - Illness [Recovering/Resolving]
  - Hospitalisation [Unknown]
  - Product dose omission issue [Recovered/Resolved]
  - Withdrawal syndrome [Recovering/Resolving]
  - Peripheral swelling [Recovering/Resolving]
  - Weight increased [Unknown]
  - Asthenia [Recovering/Resolving]
  - Dizziness [Recovering/Resolving]
  - Fatigue [Recovering/Resolving]
  - Lethargy [Recovering/Resolving]
  - Pain [Recovering/Resolving]
  - Back pain [Recovering/Resolving]
  - Neck pain [Recovering/Resolving]
  - Feeling abnormal [Recovering/Resolving]
  - Diarrhoea [Recovered/Resolved]
  - Abdominal discomfort [Recovering/Resolving]
  - Influenza [Recovering/Resolving]
  - Testicular torsion [Unknown]
  - Dysphonia [Unknown]
  - Contusion [Unknown]
  - Purpura [Unknown]
  - Groin pain [Unknown]

NARRATIVE: CASE EVENT DATE: 20231201
